FAERS Safety Report 23310022 (Version 1)
Quarter: 2023Q4

REPORT INFORMATION
  Report Type: Spontaneous
  Country: US (occurrence: None)
  Receive Date: 20231216
  Receipt Date: 20231216
  Transmission Date: 20240110
  Serious: Yes (Hospitalization)
  Sender: FDA-Public Use
  Company Number: None

PATIENT
  Sex: Male

DRUGS (2)
  1. NUCALA [Suspect]
     Active Substance: MEPOLIZUMAB
     Indication: Asthma
     Dosage: OTHER FREQUENCY : EVERY 28 DAYS;?
     Route: 058
     Dates: start: 20221221
  2. NUCALA [Suspect]
     Active Substance: MEPOLIZUMAB
     Dosage: OTHER QUANTITY : 1 PEN (100 MG);?OTHER FREQUENCY : EVERY 28 DAYS;?
     Route: 058

REACTIONS (3)
  - Impaired quality of life [None]
  - Drug ineffective [None]
  - Pharyngeal operation [None]
